FAERS Safety Report 22323525 (Version 1)
Quarter: 2023Q2

REPORT INFORMATION
  Report Type: Spontaneous
  Country: US (occurrence: None)
  Receive Date: 20230512
  Receipt Date: 20230512
  Transmission Date: 20230722
  Serious: Yes (Other)
  Sender: FDA-Public Use
  Company Number: None

PATIENT
  Age: 18 Year
  Sex: Male
  Weight: 72 kg

DRUGS (1)
  1. KENALOG [Suspect]
     Active Substance: TRIAMCINOLONE ACETONIDE
     Indication: Seasonal allergy
     Route: 058
     Dates: end: 20230512

REACTIONS (16)
  - Influenza like illness [None]
  - Anxiety [None]
  - Tremor [None]
  - Pyrexia [None]
  - Depressed mood [None]
  - Decreased appetite [None]
  - Cognitive disorder [None]
  - Muscular weakness [None]
  - Nausea [None]
  - Diarrhoea [None]
  - Temperature intolerance [None]
  - Vision blurred [None]
  - Arthralgia [None]
  - Neuralgia [None]
  - Bradykinesia [None]
  - Memory impairment [None]

NARRATIVE: CASE EVENT DATE: 20230510
